FAERS Safety Report 23223710 (Version 1)
Quarter: 2023Q4

REPORT INFORMATION
  Report Type: Report from Study
  Country: ES (occurrence: ES)
  Receive Date: 20231124
  Receipt Date: 20231124
  Transmission Date: 20240109
  Serious: Yes (Other)
  Sender: FDA-Public Use
  Company Number: ES-JNJFOC-20231151817

PATIENT
  Weight: 85 kg

DRUGS (1)
  1. TALQUETAMAB [Suspect]
     Active Substance: TALQUETAMAB
     Indication: Plasma cell myeloma refractory
     Route: 065

REACTIONS (4)
  - Cytokine release syndrome [Unknown]
  - Febrile neutropenia [Unknown]
  - Hypertransaminasaemia [Unknown]
  - Blood bilirubin increased [Unknown]
